FAERS Safety Report 6160772-5 (Version None)
Quarter: 2009Q2

REPORT INFORMATION
  Report Type: 
  Country: None (occurrence: None)
  Receive Date: 20090420
  Receipt Date: 20090410
  Transmission Date: 20091009
  Serious: Yes (Hospitalization)
  Sender: FDA-Public Use
  Company Number: PHHY2009JP08557

PATIENT
  Sex: Male
  Weight: 73 kg

DRUGS (13)
  1. DIOVAN [Suspect]
     Dosage: 80 MG, BID
     Route: 048
     Dates: start: 20071201
  2. AMLODIN [Concomitant]
     Indication: HYPERTENSION
     Dosage: 10 MG, UNK
     Route: 048
     Dates: start: 20071012
  3. BLOPRESS [Concomitant]
     Indication: HYPERTENSION
     Dosage: 12 MG, UNK
     Route: 048
     Dates: start: 20071012, end: 20071130
  4. MYSLEE [Concomitant]
     Dosage: UNK
     Route: 048
     Dates: start: 20071026
  5. AMARYL [Concomitant]
     Dosage: 2 MG, UNK
     Route: 048
     Dates: start: 20071026
  6. METFORMIN HCL [Concomitant]
     Dosage: 750 MG, UNK
     Route: 048
     Dates: start: 20071026, end: 20071130
  7. MAGNESIUM OXIDE [Concomitant]
     Dosage: UNK
     Route: 048
     Dates: start: 20071026
  8. DEPAS [Concomitant]
     Dosage: UNK
     Route: 048
     Dates: start: 20071026
  9. PRORENAL [Concomitant]
     Dosage: 15 UG
     Route: 048
     Dates: start: 20071012
  10. ITOROL [Concomitant]
     Dosage: 40 MG, UNK
     Route: 048
     Dates: start: 20071012
  11. ASPIRIN [Concomitant]
     Dosage: UNK
     Route: 048
     Dates: start: 20071012
  12. PLAVIX [Concomitant]
     Dosage: UNK
     Route: 048
     Dates: start: 20071012
  13. LIPITOR [Concomitant]
     Dosage: UNK
     Route: 048
     Dates: start: 20071012

REACTIONS (2)
  - ANGIOPLASTY [None]
  - FEMORAL ARTERIAL STENOSIS [None]
